FAERS Safety Report 24848822 (Version 2)
Quarter: 2025Q1

REPORT INFORMATION
  Report Type: Report from Study
  Country: GR (occurrence: GR)
  Receive Date: 20250116
  Receipt Date: 20250121
  Transmission Date: 20250408
  Serious: Yes (Hospitalization)
  Sender: ROCHE
  Company Number: GR-ROCHE-10000178396

PATIENT

DRUGS (2)
  1. RITUXIMAB [Suspect]
     Active Substance: RITUXIMAB
     Indication: Product used for unknown indication
     Route: 065
  2. ACTEMRA [Suspect]
     Active Substance: TOCILIZUMAB
     Indication: COVID-19 pneumonia
     Route: 065

REACTIONS (3)
  - Off label use [Unknown]
  - COVID-19 pneumonia [Recovering/Resolving]
  - Respiratory failure [Recovering/Resolving]
